FAERS Safety Report 5823523-7 (Version None)
Quarter: 2008Q3

REPORT INFORMATION
  Report Type: 
  Country: None (occurrence: None)
  Receive Date: 20080725
  Receipt Date: 20070202
  Transmission Date: 20090109
  Serious: Yes (Death, Life-Threatening, Hospitalization)
  Sender: FDA-Public Use
  Company Number: FR-PFIZER INC-2007007763

PATIENT
  Sex: Male
  Weight: 72 kg

DRUGS (9)
  1. SU-011,248 [Suspect]
     Indication: HEPATIC NEOPLASM MALIGNANT
     Route: 048
     Dates: start: 20060420, end: 20070124
  2. BROMAZEPAM [Concomitant]
     Route: 048
  3. METHYLPREDNISOLONE [Concomitant]
     Route: 048
     Dates: start: 19900101
  4. VALSARTAN [Concomitant]
     Route: 048
     Dates: start: 19990101
  5. PROPOXYPHENE HCL AND ACETAMINOPHEN [Concomitant]
     Route: 048
     Dates: start: 20060401
  6. PRAVASTATIN SODIUM [Concomitant]
     Route: 048
     Dates: start: 20060101
  7. DIFLUCORTOLONE VALERATE [Concomitant]
     Route: 048
     Dates: start: 20060503
  8. BUFEXAMAC [Concomitant]
     Route: 061
     Dates: start: 20061003
  9. OXYCODONE HCL [Concomitant]
     Route: 048

REACTIONS (5)
  - BLOOD CREATINE INCREASED [None]
  - COMA [None]
  - HYPERURICAEMIA [None]
  - PAIN [None]
  - RENAL FAILURE [None]
